FAERS Safety Report 5598729-5 (Version None)
Quarter: 2008Q1

REPORT INFORMATION
  Report Type: 
  Country: None (occurrence: None)
  Receive Date: 20080122
  Receipt Date: 20080110
  Transmission Date: 20080703
  Serious: Yes (Hospitalization)
  Sender: FDA-Public Use
  Company Number: FR-BRISTOL-MYERS SQUIBB COMPANY-14045330

PATIENT
  Age: 51 Year
  Sex: Male

DRUGS (5)
  1. LYSODREN [Suspect]
     Indication: ACTH-PRODUCING PITUITARY TUMOUR
     Dosage: 5 DF=5 TABS. 4DF 12-26SEP07; 12DF 23-28OCT07; 1500MG/DAY 29OCT-06DEC07.
     Dates: start: 20070927, end: 20071022
  2. NIZORAL [Suspect]
     Route: 048
     Dates: start: 20070912, end: 20071029
  3. ANAFRANIL [Suspect]
     Route: 048
     Dates: end: 20071113
  4. IXPRIM [Concomitant]
     Dosage: 1 DOSAGE FORM = PARACETAMOL 325 MG, TRAMADOL 37.5 MG.
     Dates: start: 20071113
  5. IMOVANE [Concomitant]

REACTIONS (7)
  - ALANINE AMINOTRANSFERASE INCREASED [None]
  - ASPARTATE AMINOTRANSFERASE INCREASED [None]
  - BLOOD ALKALINE PHOSPHATASE ABNORMAL [None]
  - CHOLESTASIS [None]
  - EOSINOPHIL COUNT INCREASED [None]
  - GAMMA-GLUTAMYLTRANSFERASE INCREASED [None]
  - RASH MACULO-PAPULAR [None]
